FAERS Safety Report 7878752-8 (Version None)
Quarter: 2011Q4

REPORT INFORMATION
  Report Type: 
  Country: None (occurrence: None)
  Receive Date: 20111028
  Receipt Date: 20111014
  Transmission Date: 20120403
  Serious: Yes (Hospitalization)
  Sender: FDA-Public Use
  Company Number: 2011100127

PATIENT
  Age: 83 Year
  Sex: Female

DRUGS (6)
  1. INOVAN (ZOPICLONE) [Concomitant]
  2. NITRODERM (GLYCERIL TRINITRATE) [Concomitant]
  3. TORSEMIDE [Suspect]
     Dosage: ORAL
     Route: 048
  4. DIGOXIN [Suspect]
     Dosage: 0.25 MG (0.25 MG, 1 IN 1 D), ORAL; 0.12 MG (0.12 MG, 1 IN 1 D), ORAL;
     Route: 048
     Dates: end: 20110329
  5. DIGOXIN [Suspect]
     Dosage: 0.25 MG (0.25 MG, 1 IN 1 D), ORAL; 0.12 MG (0.12 MG, 1 IN 1 D), ORAL;
     Route: 048
     Dates: start: 20110404
  6. BLOPRESS (CANDESARTAN CILEXETIL) [Concomitant]

REACTIONS (7)
  - OVERDOSE [None]
  - DIARRHOEA [None]
  - VOMITING [None]
  - NAUSEA [None]
  - TOXICITY TO VARIOUS AGENTS [None]
  - HYPOKALAEMIA [None]
  - DRUG INTERACTION [None]
